FAERS Safety Report 18855127 (Version 1)
Quarter: 2021Q1

REPORT INFORMATION
  Report Type: Spontaneous
  Country: GB (occurrence: GB)
  Receive Date: 20210205
  Receipt Date: 20210205
  Transmission Date: 20210420
  Serious: Yes (Other)
  Sender: FDA-Public Use
  Company Number: GB-TEVA-2021-GB-1873820

PATIENT
  Sex: Female
  Weight: 62 kg

DRUGS (1)
  1. AJOVY [Suspect]
     Active Substance: FREMANEZUMAB-VFRM
     Route: 065
     Dates: start: 20201221, end: 20210119

REACTIONS (5)
  - Skin reaction [Unknown]
  - Feeling hot [Recovered/Resolved]
  - Injection site reaction [Unknown]
  - Injection site rash [Recovered/Resolved]
  - Peripheral swelling [Recovered/Resolved]
